FAERS Safety Report 9551098 (Version 1)
Quarter: 2013Q3

REPORT INFORMATION
  Report Type: Spontaneous
  Country: US (occurrence: US)
  Receive Date: 20130925
  Receipt Date: 20130925
  Transmission Date: 20140515
  Serious: Yes (Other)
  Sender: FDA-Public Use
  Company Number: US-BIOGENIDEC-2013BI091158

PATIENT
  Sex: Female

DRUGS (1)
  1. AVONEX [Suspect]
     Indication: MULTIPLE SCLEROSIS
     Route: 030
     Dates: start: 19960801

REACTIONS (7)
  - Bone marrow failure [Recovered/Resolved]
  - Fall [Recovered/Resolved]
  - Hepatic steatosis [Not Recovered/Not Resolved]
  - Periorbital contusion [Recovered/Resolved]
  - Facial bones fracture [Recovered/Resolved]
  - Upper limb fracture [Recovered/Resolved]
  - Influenza like illness [Not Recovered/Not Resolved]
